FAERS Safety Report 25670398 (Version 4)
Quarter: 2025Q4

REPORT INFORMATION
  Report Type: Spontaneous
  Country: CA (occurrence: CA)
  Receive Date: 20250812
  Receipt Date: 20251103
  Transmission Date: 20260118
  Serious: Yes (Other)
  Sender: PFIZER
  Company Number: CA-PFIZER INC-202500092001

PATIENT
  Age: 20 Year
  Sex: Male
  Weight: 56 kg

DRUGS (8)
  1. IXIFI [Suspect]
     Active Substance: INFLIXIMAB-QBTX
     Indication: Colitis ulcerative
     Dosage: 400MG, EVERY 4 WEEKS
     Route: 042
     Dates: start: 20250514
  2. IXIFI [Suspect]
     Active Substance: INFLIXIMAB-QBTX
     Dosage: 400MG, EVERY 4 WEEKS
     Route: 042
     Dates: start: 20250609
  3. IXIFI [Suspect]
     Active Substance: INFLIXIMAB-QBTX
     Dosage: 400MG, EVERY 4 WEEKS
     Route: 042
     Dates: start: 20250709
  4. IXIFI [Suspect]
     Active Substance: INFLIXIMAB-QBTX
     Dosage: 400MG, EVERY 4 WEEKS
     Route: 042
     Dates: start: 20250807
  5. IXIFI [Suspect]
     Active Substance: INFLIXIMAB-QBTX
     Dosage: 400MG, EVERY 4 WEEKS
     Route: 042
     Dates: start: 20250906
  6. IXIFI [Suspect]
     Active Substance: INFLIXIMAB-QBTX
     Dosage: 400MG, EVERY 4 WEEKS (AFTER 3 WEEKS AND 5 DAYS)
     Route: 042
     Dates: start: 20251002
  7. IXIFI [Suspect]
     Active Substance: INFLIXIMAB-QBTX
     Dosage: 400MG, 4 WEEKS (EVERY 4 WEEKS)
     Route: 042
     Dates: start: 20251029
  8. METHOTREXATE [Concomitant]
     Active Substance: METHOTREXATE
     Dosage: UNK

REACTIONS (4)
  - Syncope [Recovered/Resolved]
  - Condition aggravated [Recovering/Resolving]
  - Body temperature decreased [Unknown]
  - Off label use [Unknown]

NARRATIVE: CASE EVENT DATE: 20250514
